FAERS Safety Report 8487399-4 (Version None)
Quarter: 2012Q2

REPORT INFORMATION
  Report Type: 
  Country: None (occurrence: None)
  Receive Date: 20120628
  Receipt Date: 20120628
  Transmission Date: 20120825
  Serious: Yes (Other)
  Sender: FDA-Public Use
  Company Number: None

PATIENT
  Age: 78 Year
  Sex: Male

DRUGS (2)
  1. XELODA [Suspect]
     Indication: PANCREATIC CARCINOMA
     Dosage: 2000 MG BID PO
     Route: 048
     Dates: start: 20120101
  2. BENADRYL [Concomitant]

REACTIONS (3)
  - PAIN IN JAW [None]
  - DRY MOUTH [None]
  - RASH [None]
